FAERS Safety Report 10467880 (Version 1)
Quarter: 2014Q3

REPORT INFORMATION
  Report Type: Spontaneous
  Country: GB (occurrence: GB)
  Receive Date: 20140922
  Receipt Date: 20140922
  Transmission Date: 20150326
  Serious: Yes (Death, Hospitalization)
  Sender: FDA-Public Use
  Company Number: PHFR2014GB006432

PATIENT
  Sex: Male

DRUGS (9)
  1. CLOZARIL [Suspect]
     Active Substance: CLOZAPINE
     Indication: SCHIZOPHRENIA
     Dosage: 200 MG, MANE AND 300 MG NOCTE
     Route: 048
     Dates: start: 2004, end: 20140424
  2. GTN [Concomitant]
     Active Substance: NITROGLYCERIN
     Dosage: UKN
  3. SODIUM VALPROATE [Concomitant]
     Active Substance: VALPROATE SODIUM
     Dosage: 1200 MG, DAILY
     Dates: end: 20140424
  4. HYOSCINE [Concomitant]
     Active Substance: SCOPOLAMINE
     Dosage: UKN
  5. SIMVASTATIN. [Concomitant]
     Active Substance: SIMVASTATIN
     Dosage: UKN
  6. ASPIRIN. [Concomitant]
     Active Substance: ASPIRIN
     Dosage: UKN
  7. SODIUM VALPROATE [Concomitant]
     Active Substance: VALPROATE SODIUM
     Indication: EPILEPSY
     Dosage: 600 MG, DAILY
  8. RAMIPRIL. [Concomitant]
     Active Substance: RAMIPRIL
     Dosage: UKN
  9. AMISULPRIDE [Concomitant]
     Active Substance: AMISULPRIDE
     Indication: SCHIZOPHRENIA
     Dosage: 200 MG, BID
     Dates: end: 20140424

REACTIONS (2)
  - Neoplasm malignant [Fatal]
  - General physical health deterioration [Unknown]
